FAERS Safety Report 10257625 (Version 1)
Quarter: 2014Q2

REPORT INFORMATION
  Report Type: Spontaneous
  Country: IT (occurrence: IT)
  Receive Date: 20140625
  Receipt Date: 20140625
  Transmission Date: 20141212
  Serious: Yes (Hospitalization)
  Sender: FDA-Public Use
  Company Number: IT-RANBAXY-2014RR-82842

PATIENT
  Age: 25 Year
  Sex: Female

DRUGS (3)
  1. PARACETAMOL [Suspect]
     Indication: DRUG ABUSE
     Dosage: 16 G, TOTAL
     Route: 048
     Dates: start: 20140604, end: 20140604
  2. XANAX [Suspect]
     Indication: DRUG ABUSE
     Dosage: 20 ML, TOTAL
     Route: 048
     Dates: start: 20140604, end: 20140604
  3. OPTALIDON [Suspect]
     Indication: DRUG ABUSE
     Dosage: 10 DF, TOTAL
     Route: 048
     Dates: start: 20140604, end: 20140604

REACTIONS (3)
  - Drug abuse [Recovering/Resolving]
  - Hepatic function abnormal [Recovering/Resolving]
  - Loss of consciousness [Recovering/Resolving]
